FAERS Safety Report 8424299 (Version 2)
Quarter: 2013Q1

REPORT INFORMATION
  Report Type: Spontaneous
  Country: US (occurrence: US)
  Receive Date: 20120224
  Receipt Date: 20130211
  Transmission Date: 20140127
  Serious: No
  Sender: FDA-Public Use
  Company Number: US-BRISTOL-MYERS SQUIBB COMPANY-16260283

PATIENT
  Sex: Male

DRUGS (4)
  1. METFORMIN HCL [Suspect]
     Dates: end: 2011
  2. LANTUS [Suspect]
     Indication: TYPE 2 DIABETES MELLITUS
     Dosage: 1DF:12-18 UNITS.LANTUS:100IU/ML TILL 2011.2011-UNK:BID,28UNITS: 2011-ONG,BID.DURATION 7.5YR.
     Route: 058
     Dates: start: 2003
  3. GLIPIZIDE [Suspect]
     Dates: end: 2011
  4. ACTOS [Suspect]

REACTIONS (1)
  - Renal disorder [Unknown]
